FAERS Safety Report 4653169-8 (Version None)
Quarter: 2005Q2

REPORT INFORMATION
  Report Type: 
  Country: None (occurrence: None)
  Receive Date: 20050503
  Receipt Date: 20050418
  Transmission Date: 20051028
  Serious: Yes (Other)
  Sender: FDA-Public Use
  Company Number: 2005058899

PATIENT
  Age: 75 Year
  Sex: Female

DRUGS (13)
  1. CELEBREX [Suspect]
     Indication: ARTHRALGIA
     Dosage: 400 MG (200 MG, 2 IN 1 D), ORAL
     Route: 048
     Dates: start: 20050401
  2. BEXTRA [Suspect]
     Indication: ARTHRALGIA
     Dosage: 20 MG (20 MG, 1 IN 1 D), ORAL
     Route: 048
  3. POTASSIUM ACETATE [Concomitant]
  4. MORPHINE SULFATE [Concomitant]
  5. ATENOLOL [Concomitant]
  6. FLUOXETINE [Concomitant]
  7. TRIAMTERENE (TRIAMTERENE) [Concomitant]
  8. LEVOTHYROXINE SODIUM [Concomitant]
  9. PANTOPRAZOLE (PANTOPRAZOLE) [Concomitant]
  10. GEMFIBROZIL [Concomitant]
  11. DEXTROPROPXYPHENE HYDROCHLORIDE (DEXTROPROPOXYPHENE HYDROCHLORIDE) [Concomitant]
  12. ZOLPIDEM TARTRATE [Concomitant]
  13. CHEMOTHERAPY NOS (CHEMOTHERAPY NOS) [Concomitant]

REACTIONS (9)
  - ARTHRITIS [None]
  - DEVICE FAILURE [None]
  - DRUG INEFFECTIVE [None]
  - HIP ARTHROPLASTY [None]
  - LOWER LIMB DEFORMITY [None]
  - METASTASES TO BONE [None]
  - PAIN [None]
  - PHARMACEUTICAL PRODUCT COMPLAINT [None]
  - SURGICAL PROCEDURE REPEATED [None]
